FAERS Safety Report 11151855 (Version 3)
Quarter: 2015Q3

REPORT INFORMATION
  Report Type: Spontaneous
  Country: US (occurrence: US)
  Receive Date: 20150601
  Receipt Date: 20150814
  Transmission Date: 20151125
  Serious: Yes (Hospitalization)
  Sender: FDA-Public Use
  Company Number: US-PFIZER INC-2015181152

PATIENT
  Age: 9 Year
  Sex: Male
  Weight: 33 kg

DRUGS (16)
  1. CLONIDINE. [Interacting]
     Active Substance: CLONIDINE
     Indication: BALANCE DISORDER
  2. DEPAKOTE [Interacting]
     Active Substance: DIVALPROEX SODIUM
     Indication: MOOD ALTERED
     Dosage: 250 MG, 2X/DAY
     Dates: start: 2014
  3. CLONIDINE. [Interacting]
     Active Substance: CLONIDINE
     Indication: INSOMNIA
  4. RISPERIDONE. [Interacting]
     Active Substance: RISPERIDONE
     Indication: AFFECTIVE DISORDER
  5. DEPAKOTE [Interacting]
     Active Substance: DIVALPROEX SODIUM
     Indication: ATTENTION DEFICIT/HYPERACTIVITY DISORDER
  6. DEPAKOTE [Interacting]
     Active Substance: DIVALPROEX SODIUM
     Indication: DEPRESSION
  7. ADDERALL [Concomitant]
     Active Substance: AMPHETAMINE ASPARTATE\AMPHETAMINE SULFATE\DEXTROAMPHETAMINE SACCHARATE\DEXTROAMPHETAMINE SULFATE
     Indication: ATTENTION DEFICIT/HYPERACTIVITY DISORDER
     Dosage: 2 DF, UNK (1 TABLET AT 8AM, 1 TABLET AT 12AFTERNOON)
     Dates: start: 201308
  8. QUILLIVANT XR [Suspect]
     Active Substance: METHYLPHENIDATE HYDROCHLORIDE
     Indication: ATTENTION DEFICIT/HYPERACTIVITY DISORDER
     Dosage: 4 ML, 1X/DAY (EVERY MORNING)
     Route: 048
     Dates: start: 20150507, end: 20150525
  9. RISPERIDONE. [Interacting]
     Active Substance: RISPERIDONE
     Indication: EMOTIONAL DISORDER
  10. DEPAKOTE [Interacting]
     Active Substance: DIVALPROEX SODIUM
     Indication: MOOD SWINGS
  11. ADDERALL [Concomitant]
     Active Substance: AMPHETAMINE ASPARTATE\AMPHETAMINE SULFATE\DEXTROAMPHETAMINE SACCHARATE\DEXTROAMPHETAMINE SULFATE
     Indication: PSYCHOMOTOR HYPERACTIVITY
  12. CLONIDINE. [Interacting]
     Active Substance: CLONIDINE
     Indication: DEPRESSION
     Dosage: 1 MG, 1X/DAY
  13. RISPERIDONE. [Interacting]
     Active Substance: RISPERIDONE
     Indication: ABNORMAL BEHAVIOUR
     Dosage: 2 DF, UNK (1 TABLET AT 4PM, 1 TABLET AT BEDTIME)
     Dates: start: 201308
  14. RISPERIDONE. [Interacting]
     Active Substance: RISPERIDONE
     Indication: DEPRESSION
  15. RISPERIDONE. [Interacting]
     Active Substance: RISPERIDONE
     Indication: ATTENTION DEFICIT/HYPERACTIVITY DISORDER
  16. CLONIDINE. [Interacting]
     Active Substance: CLONIDINE
     Indication: ABNORMAL BEHAVIOUR
     Dosage: UNK (1/2 TABLET AT BED TIME)
     Dates: start: 2014

REACTIONS (5)
  - Discomfort [Not Recovered/Not Resolved]
  - Irritability [Not Recovered/Not Resolved]
  - Abdominal pain upper [Recovered/Resolved]
  - Dyspepsia [Not Recovered/Not Resolved]
  - Drug interaction [Not Recovered/Not Resolved]

NARRATIVE: CASE EVENT DATE: 201505
